FAERS Safety Report 5840988-5 (Version None)
Quarter: 2008Q3

REPORT INFORMATION
  Report Type: 
  Country: None (occurrence: None)
  Receive Date: 20080811
  Receipt Date: 20080729
  Transmission Date: 20090109
  Serious: Yes (Hospitalization)
  Sender: FDA-Public Use
  Company Number: FR-GENENTECH-233400

PATIENT
  Sex: Female
  Weight: 60 kg

DRUGS (9)
  1. BEVACIZUMAB [Suspect]
     Indication: BREAST CANCER METASTATIC
     Route: 042
  2. BEVACIZUMAB [Suspect]
     Dosage: 975 MG, Q3W
     Route: 042
     Dates: start: 20061025
  3. DOCETAXEL [Suspect]
     Indication: BREAST CANCER METASTATIC
     Route: 042
  4. DOCETAXEL [Suspect]
     Dosage: 166 MG, Q3W
     Route: 042
     Dates: start: 20061025
  5. NEULASTA [Concomitant]
     Indication: DRUG USE FOR UNKNOWN INDICATION
     Dates: start: 20061117, end: 20061117
  6. ZOMETA [Concomitant]
     Indication: DRUG USE FOR UNKNOWN INDICATION
  7. PROPOXYPHENE HCL AND ACETAMINOPHEN [Concomitant]
     Indication: DRUG USE FOR UNKNOWN INDICATION
  8. DAFALGAN [Concomitant]
     Indication: DRUG USE FOR UNKNOWN INDICATION
  9. SOLUPRED [Concomitant]
     Indication: DRUG USE FOR UNKNOWN INDICATION

REACTIONS (1)
  - GENERAL PHYSICAL HEALTH DETERIORATION [None]
